FAERS Safety Report 13286810 (Version 1)
Quarter: 2017Q1

REPORT INFORMATION
  Report Type: Report from Study
  Country: DE (occurrence: DE)
  Receive Date: 20170301
  Receipt Date: 20170301
  Transmission Date: 20170428
  Serious: Yes (Hospitalization)
  Sender: FDA-Public Use
  Company Number: DE-ROCHE-1898923

PATIENT
  Age: 71 Year
  Sex: Male
  Weight: 70 kg

DRUGS (3)
  1. PANTOZOL [Concomitant]
     Active Substance: PANTOPRAZOLE SODIUM
     Dosage: FOR STOMACH PROTECTION
     Route: 048
  2. UNACID [Concomitant]
     Active Substance: AMPICILLIN SODIUM\SULBACTAM SODIUM
     Route: 048
     Dates: start: 20160201, end: 20160205
  3. VISMODEGIB [Suspect]
     Active Substance: VISMODEGIB
     Indication: BASAL CELL CARCINOMA
     Route: 048
     Dates: start: 20160208, end: 20160620

REACTIONS (2)
  - Psoriasis [Recovered/Resolved]
  - Ileus [Recovered/Resolved]

NARRATIVE: CASE EVENT DATE: 20160620
